FAERS Safety Report 17463934 (Version 2)
Quarter: 2020Q1

REPORT INFORMATION
  Report Type: Report from Study
  Country: None (occurrence: US)
  Receive Date: 20200226
  Receipt Date: 20200227
  Transmission Date: 20200409
  Serious: Yes (Other)
  Sender: FDA-Public Use
  Company Number: US-ABBVIE-20K-163-3236670-00

PATIENT
  Age: 73 Year
  Sex: Female

DRUGS (1)
  1. HUMIRA [Suspect]
     Active Substance: ADALIMUMAB
     Indication: PSORIASIS
     Route: 058

REACTIONS (7)
  - Tooth extraction [Unknown]
  - Device loosening [Recovering/Resolving]
  - Device physical property issue [Recovering/Resolving]
  - Tooth disorder [Recovering/Resolving]
  - Oral surgery [Recovering/Resolving]
  - Device breakage [Recovering/Resolving]
  - Gingival pain [Recovering/Resolving]

NARRATIVE: CASE EVENT DATE: 202001
